FAERS Safety Report 10078425 (Version 3)
Quarter: 2015Q1

REPORT INFORMATION
  Report Type: Report from Study
  Country: US (occurrence: US)
  Receive Date: 20140415
  Receipt Date: 20150120
  Transmission Date: 20150720
  Serious: Yes (Hospitalization)
  Sender: FDA-Public Use
  Company Number: US-ROCHE-1377821

PATIENT
  Age: 53 Year
  Sex: Male
  Weight: 83.6 kg

DRUGS (73)
  1. ALTEPLASE [Concomitant]
     Active Substance: ALTEPLASE
     Route: 042
     Dates: start: 20150110
  2. MYCAMINE [Concomitant]
     Active Substance: MICAFUNGIN SODIUM
  3. HUMALOG [Concomitant]
     Active Substance: INSULIN LISPRO
     Route: 065
  4. OMEPRAZOLE. [Concomitant]
     Active Substance: OMEPRAZOLE
     Route: 065
  5. RESTASIS [Concomitant]
     Active Substance: CYCLOSPORINE
     Dosage: 1-2 DROPS, EVERY 6 HOURS
     Route: 047
     Dates: start: 20150110
  6. FENTANYL CITRATE. [Concomitant]
     Active Substance: FENTANYL CITRATE
     Route: 065
     Dates: start: 20141204, end: 20141210
  7. XYLOCAINE [Concomitant]
     Active Substance: LIDOCAINE HYDROCHLORIDE
     Dosage: INHALATION 1.5 ML SOLUTION
     Route: 065
  8. CEFEPIME [Concomitant]
     Active Substance: CEFEPIME\CEFEPIME HYDROCHLORIDE
     Route: 042
     Dates: start: 20150110
  9. RITUXIMAB [Suspect]
     Active Substance: RITUXIMAB
     Route: 042
     Dates: start: 201404
  10. OXYCONTIN [Concomitant]
     Active Substance: OXYCODONE HYDROCHLORIDE
     Route: 048
     Dates: start: 20150110
  11. RESTASIS [Concomitant]
     Active Substance: CYCLOSPORINE
     Route: 065
  12. ZYLOPRIM [Concomitant]
     Active Substance: ALLOPURINOL
     Route: 048
     Dates: start: 20150110
  13. ZYLOPRIM [Concomitant]
     Active Substance: ALLOPURINOL
     Route: 065
  14. MIDAZOLAM [Concomitant]
     Active Substance: MIDAZOLAM\MIDAZOLAM HYDROCHLORIDE
     Route: 065
  15. PALIVIZUMAB [Concomitant]
     Active Substance: PALIVIZUMAB
     Route: 042
  16. LASIX [Concomitant]
     Active Substance: FUROSEMIDE
  17. ATENOLOL. [Concomitant]
     Active Substance: ATENOLOL
     Route: 065
     Dates: start: 20141204, end: 20141210
  18. TYLENOL [Concomitant]
     Active Substance: ACETAMINOPHEN
     Route: 065
  19. ROBITUSSIN AC (UNITED STATES) [Concomitant]
     Route: 065
  20. CLONAZEPAM. [Concomitant]
     Active Substance: CLONAZEPAM
     Route: 048
     Dates: start: 20141203, end: 20141210
  21. BENZOCAINE. [Concomitant]
     Active Substance: BENZOCAINE
     Route: 065
  22. BENZOCAINE. [Concomitant]
     Active Substance: BENZOCAINE
     Dosage: 1 SPRAY
     Route: 065
     Dates: start: 20141204, end: 20141204
  23. XYLOCAINE [Concomitant]
     Active Substance: LIDOCAINE HYDROCHLORIDE
     Dosage: INHALATION
     Route: 065
  24. RITUXIMAB [Suspect]
     Active Substance: RITUXIMAB
     Route: 042
     Dates: start: 201410
  25. ATENOLOL. [Concomitant]
     Active Substance: ATENOLOL
     Route: 065
  26. HYDROCORTISONE. [Concomitant]
     Active Substance: HYDROCORTISONE
     Route: 065
  27. NOXAFIL [Concomitant]
     Active Substance: POSACONAZOLE
     Route: 065
  28. PROGRAF [Concomitant]
     Active Substance: TACROLIMUS\TACROLIMUS ANHYDROUS
     Route: 065
  29. VANCOMYCIN [Concomitant]
     Active Substance: VANCOMYCIN
     Route: 065
  30. COMPAZINE [Concomitant]
     Active Substance: PROCHLORPERAZINE MALEATE
  31. ZOLPIDEM [Concomitant]
     Active Substance: ZOLPIDEM\ZOLPIDEM TARTRATE
  32. PALIVIZUMAB [Concomitant]
     Active Substance: PALIVIZUMAB
     Dosage: 100MG=50 ML SOLUTION
     Route: 042
     Dates: start: 20141204, end: 20141210
  33. RITUXIMAB [Suspect]
     Active Substance: RITUXIMAB
     Route: 042
     Dates: start: 201407
  34. DEMECLOCYCLINE [Concomitant]
     Active Substance: DEMECLOCYCLINE
     Route: 065
  35. LASIX [Concomitant]
     Active Substance: FUROSEMIDE
     Route: 065
  36. OXYCONTIN [Concomitant]
     Active Substance: OXYCODONE HYDROCHLORIDE
     Route: 065
  37. LORATADINE. [Concomitant]
     Active Substance: LORATADINE
     Route: 065
  38. ZOFRAN [Concomitant]
     Active Substance: ONDANSETRON HYDROCHLORIDE
     Route: 048
     Dates: start: 20150110
  39. AZACTAM [Concomitant]
     Active Substance: AZTREONAM
     Dosage: AZTREONAM IN DEXAMETHASONE, EVERY 8 HOURS
     Route: 065
     Dates: start: 20141203, end: 20141210
  40. XYLOCAINE [Concomitant]
     Active Substance: LIDOCAINE HYDROCHLORIDE
     Dosage: 50 ML
     Route: 065
     Dates: start: 20141204, end: 20141210
  41. LEVAQUIN [Concomitant]
     Active Substance: LEVOFLOXACIN
  42. KLONOPIN [Concomitant]
     Active Substance: CLONAZEPAM
  43. OXYCODONE [Concomitant]
     Active Substance: OXYCODONE
     Route: 065
  44. HYDROCORTISONE. [Concomitant]
     Active Substance: HYDROCORTISONE
     Route: 048
     Dates: start: 20150110
  45. LANTUS [Concomitant]
     Active Substance: INSULIN GLARGINE
  46. PROGRAF [Concomitant]
     Active Substance: TACROLIMUS\TACROLIMUS ANHYDROUS
     Route: 065
     Dates: start: 20141204, end: 20141208
  47. HYCODAN (UNITED STATES) [Concomitant]
     Route: 065
  48. ZOFRAN [Concomitant]
     Active Substance: ONDANSETRON HYDROCHLORIDE
     Route: 042
     Dates: start: 20150110
  49. ZYLOPRIM [Concomitant]
     Active Substance: ALLOPURINOL
     Route: 048
     Dates: start: 20141203, end: 20141210
  50. ZYLOPRIM [Concomitant]
     Active Substance: ALLOPURINOL
     Route: 048
     Dates: start: 20141203, end: 20141210
  51. CYCLOSPORIN [Concomitant]
     Active Substance: CYCLOSPORINE
     Dosage: 1-2 DROPS, EVERY 6 HOURS
     Route: 047
     Dates: start: 20141203, end: 20141210
  52. METRONIDAZOLE. [Concomitant]
     Active Substance: METRONIDAZOLE
     Route: 048
     Dates: start: 20150110
  53. LASIX [Concomitant]
     Active Substance: FUROSEMIDE
     Route: 048
     Dates: start: 20150110
  54. HYDROCORTISONE. [Concomitant]
     Active Substance: HYDROCORTISONE
     Route: 048
     Dates: start: 20150111
  55. HUMALOG [Concomitant]
     Active Substance: INSULIN LISPRO
     Dosage: 1-10 UNITS
     Route: 058
     Dates: start: 20150110
  56. CELLCEPT [Concomitant]
     Active Substance: MYCOPHENOLATE MOFETIL\MYCOPHENOLATE MOFETIL HYDROCHLORIDE
     Route: 065
  57. PROGRAF [Concomitant]
     Active Substance: TACROLIMUS\TACROLIMUS ANHYDROUS
     Route: 048
     Dates: start: 20141204, end: 20141208
  58. PROGRAF [Concomitant]
     Active Substance: TACROLIMUS\TACROLIMUS ANHYDROUS
     Route: 048
     Dates: start: 20150110
  59. MORPHINE [Concomitant]
     Active Substance: MORPHINE
  60. ZOFRAN [Concomitant]
     Active Substance: ONDANSETRON HYDROCHLORIDE
     Route: 065
  61. ZYLOPRIM [Concomitant]
     Active Substance: ALLOPURINOL
     Route: 048
  62. PANTOPRAZOLE [Concomitant]
     Active Substance: PANTOPRAZOLE SODIUM
     Route: 048
     Dates: start: 20141203, end: 20141210
  63. RITUXIMAB [Suspect]
     Active Substance: RITUXIMAB
     Indication: CHRONIC GRAFT VERSUS HOST DISEASE
     Route: 042
     Dates: start: 20140121, end: 20140211
  64. OXYCODONE [Concomitant]
     Active Substance: OXYCODONE
     Route: 048
     Dates: start: 20150110
  65. ATENOLOL. [Concomitant]
     Active Substance: ATENOLOL
     Route: 048
     Dates: start: 20150111
  66. LOVENOX [Concomitant]
     Active Substance: ENOXAPARIN SODIUM
     Route: 065
  67. FLORINEF ACETATE [Concomitant]
     Active Substance: FLUDROCORTISONE ACETATE
     Route: 065
  68. MAGNESIUM OXIDE. [Concomitant]
     Active Substance: MAGNESIUM OXIDE
     Route: 065
  69. SPIRONOLACTONE. [Concomitant]
     Active Substance: SPIRONOLACTONE
     Route: 065
  70. KENALOG [Concomitant]
     Active Substance: TRIAMCINOLONE ACETONIDE
     Route: 065
  71. PANTOPRAZOLE [Concomitant]
     Active Substance: PANTOPRAZOLE SODIUM
     Route: 048
  72. PANTOPRAZOLE [Concomitant]
     Active Substance: PANTOPRAZOLE SODIUM
     Route: 048
     Dates: start: 20150111
  73. LEVALBUTEROL [Concomitant]
     Active Substance: LEVALBUTEROL
     Route: 045
     Dates: start: 20150111

REACTIONS (5)
  - Pneumonia [Unknown]
  - Hepatic function abnormal [Recovered/Resolved with Sequelae]
  - Chest pain [Unknown]
  - Pneumonia [Unknown]
  - Pneumonia respiratory syncytial viral [Recovered/Resolved]

NARRATIVE: CASE EVENT DATE: 20140311
